FAERS Safety Report 12406540 (Version 2)
Quarter: 2016Q3

REPORT INFORMATION
  Report Type: Spontaneous
  Country: NL (occurrence: NL)
  Receive Date: 20160526
  Receipt Date: 20160706
  Transmission Date: 20161109
  Serious: Yes (Hospitalization, Other)
  Sender: FDA-Public Use
  Company Number: NL-AMGEN-NLDSP2016055850

PATIENT
  Age: 68 Year
  Sex: Male
  Weight: 93 kg

DRUGS (29)
  1. ENBREL [Suspect]
     Active Substance: ETANERCEPT
     Dosage: 50 ML, ONCE IN TWO WEEKS
     Route: 065
     Dates: start: 20160405
  2. DUSPATAL                           /00139402/ [Concomitant]
     Dosage: 1 DF, 2X/DAY, AS NEEDED
     Dates: start: 20020501
  3. FOLIUMZUUR [Concomitant]
     Active Substance: FOLIC ACID
     Dosage: 2 DF, WEEKLY (ON SUNDAYS)
     Dates: start: 20151012, end: 20160517
  4. EMCOR [Concomitant]
     Active Substance: BISOPROLOL
     Dosage: 1 DF, 1X/DAY, AS NEEDED
     Dates: start: 20041025
  5. AMITRIPTYLLINE [Concomitant]
     Active Substance: AMITRIPTYLINE
     Dosage: 1 DF, 1X/DAY (BEFORE NIGHT)
     Dates: start: 20070523
  6. DIAZEPAM. [Concomitant]
     Active Substance: DIAZEPAM
     Dosage: 1 DF, 2X/DAY, AS NEEDED
     Dates: start: 19980619
  7. ENBREL [Suspect]
     Active Substance: ETANERCEPT
     Indication: RHEUMATOID ARTHRITIS
     Dosage: 50 ML, 1X/WEEK
     Route: 065
     Dates: start: 201502, end: 201511
  8. DESURIC [Concomitant]
     Dosage: 0.5 DF, 1X/DAY
     Dates: start: 20140422
  9. SALBUTAMOL [Concomitant]
     Active Substance: ALBUTEROL
     Dosage: 1 DF, 4X/DAY
     Dates: start: 20160219
  10. MICARDIS [Concomitant]
     Active Substance: TELMISARTAN
     Dosage: 1 DF, 1X/DAY
     Dates: start: 20131224
  11. SPIRIVA [Concomitant]
     Active Substance: TIOTROPIUM BROMIDE MONOHYDRATE
     Dosage: 1 DF, 1X/DAY (CAPSULE)
     Dates: start: 20151116
  12. FENTANYL. [Concomitant]
     Active Substance: FENTANYL
     Dosage: 1 DF, 72 HOURS
     Dates: start: 20131224
  13. TEMAZEPAM. [Concomitant]
     Active Substance: TEMAZEPAM
     Dosage: 2 DF, 1X/DAY (BEFORE NIGHT)
     Dates: start: 20010725
  14. LOSEC [Concomitant]
     Active Substance: OMEPRAZOLE
     Dosage: 1 DF, 2X/DAY
     Dates: start: 20090717
  15. MACROGOL [Concomitant]
     Active Substance: POLYETHYLENE GLYCOLS
     Dosage: 1 DF, 1X/DAY
     Dates: start: 20150205
  16. PREDNISOLON                        /00016201/ [Concomitant]
     Active Substance: PREDNISOLONE
     Dosage: 1 DF, 1X/DAY
     Dates: start: 20160219, end: 20160419
  17. FOSTER                             /00500401/ [Concomitant]
     Active Substance: PIROXICAM
     Dosage: 2 INHALATIONS, 3X/DAY
     Dates: start: 20151231
  18. SPIRIVA [Concomitant]
     Active Substance: TIOTROPIUM BROMIDE MONOHYDRATE
     Dosage: 1 DF, 1X/DAY (INHALATION)
     Dates: start: 20160219, end: 20160519
  19. FLIXONASE [Concomitant]
     Active Substance: FLUTICASONE PROPIONATE
     Dosage: 0.5 DF, 2X/DAY (HALF AMPULE)
     Dates: start: 20160125
  20. AZITROMYCINE [Concomitant]
     Dosage: 1 DF, EVERY OTHER DAY
     Dates: start: 20160219, end: 20160304
  21. DUSPATAL                           /00139402/ [Concomitant]
     Dosage: 1 DF, 2X/DAY, AS NEEDED
     Dates: start: 20020501
  22. FOSTER                             /00500401/ [Concomitant]
     Active Substance: PIROXICAM
     Dosage: 2 INHALATIONS, 3X/DAY
     Dates: start: 20151231
  23. METOJECT [Concomitant]
     Active Substance: METHOTREXATE SODIUM
     Dosage: 1 DF, WEEKLY (ON FRIDAYS), AS NEEDED
     Dates: start: 20150827
  24. LOSEC [Concomitant]
     Active Substance: OMEPRAZOLE
     Dosage: 1 DF, 2X/DAY
     Dates: start: 20090717
  25. MONTELUKAST [Concomitant]
     Active Substance: MONTELUKAST SODIUM
     Dosage: 1 DF, 1X/DAY
     Dates: start: 20080527
  26. DESLORATADINE. [Concomitant]
     Active Substance: DESLORATADINE
     Dosage: 1 DF, 1X/DAY
     Dates: start: 20160304, end: 20160403
  27. LIDOC [Concomitant]
     Active Substance: LIDOCAINE
     Dosage: 3 TO 5 TIMES PER DAY
     Dates: start: 20160304, end: 20160403
  28. CALCI CHEW D3 [Concomitant]
     Active Substance: CALCIUM CARBONATE\CHOLECALCIFEROL
     Dosage: 1 DF, 1X/DAY (BEFORE NIGHT)
     Dates: start: 20141030
  29. SALBUTAMOL [Concomitant]
     Active Substance: ALBUTEROL
     Dosage: 1 DF, 4X/DAY
     Dates: start: 20160108

REACTIONS (7)
  - Pneumonia [Recovered/Resolved with Sequelae]
  - Asthma [Unknown]
  - Respiratory tract infection [Recovered/Resolved with Sequelae]
  - Fatigue [Recovered/Resolved with Sequelae]
  - Nasopharyngitis [Recovered/Resolved]
  - Dyspnoea [Recovered/Resolved with Sequelae]
  - Sinusitis [Recovered/Resolved with Sequelae]

NARRATIVE: CASE EVENT DATE: 2015
